FAERS Safety Report 7901649-1 (Version None)
Quarter: 2011Q4

REPORT INFORMATION
  Report Type: 
  Country: None (occurrence: None)
  Receive Date: 20111108
  Receipt Date: 20111003
  Transmission Date: 20120403
  Serious: Yes (Death)
  Sender: FDA-Public Use
  Company Number: CH-ROCHE-1010124

PATIENT
  Sex: Female

DRUGS (6)
  1. FERRUM HAUSMANN [Concomitant]
     Route: 048
     Dates: end: 20111002
  2. ACETAMINOPHEN [Concomitant]
     Route: 048
     Dates: end: 20111002
  3. MABTHERA [Suspect]
     Indication: B-CELL LYMPHOMA
     Dosage: LAST DOSE PRIOR TO SAE 7 SEP 2011
     Route: 042
     Dates: start: 20110907
  4. LENALIDOMIDE [Suspect]
     Indication: B-CELL LYMPHOMA
     Dosage: LAST DOSE PRIOR TO SAE 27 SEP 2011
     Route: 048
     Dates: start: 20110907
  5. BENDAMUSTINE [Suspect]
     Indication: B-CELL LYMPHOMA
     Dosage: LAST DOSE PRIOR TO SAE 8 SEP 2011
     Route: 042
     Dates: start: 20110907
  6. PANTOPRAZOLE [Concomitant]
     Route: 048
     Dates: start: 20110907, end: 20111002

REACTIONS (1)
  - DEATH [None]
